FAERS Safety Report 9809355 (Version 2)
Quarter: 2014Q1

REPORT INFORMATION
  Report Type: Report from Study
  Country: DE (occurrence: DE)
  Receive Date: 20140110
  Receipt Date: 20140131
  Transmission Date: 20141002
  Serious: Yes (Hospitalization)
  Sender: FDA-Public Use
  Company Number: FR-ASTELLAS-2014US000317

PATIENT
  Age: 4 Year
  Sex: Female

DRUGS (1)
  1. TACROLIMUS OINTMENT [Suspect]
     Indication: DERMATITIS ATOPIC
     Dosage: 0.3 %, WEEKLY
     Route: 061
     Dates: start: 20100202

REACTIONS (1)
  - Upper limb fracture [Recovered/Resolved]
